FAERS Safety Report 9787854 (Version 1)
Quarter: 2013Q4

REPORT INFORMATION
  Report Type: Spontaneous
  Country: US (occurrence: US)
  Receive Date: 20131230
  Receipt Date: 20131230
  Transmission Date: 20140711
  Serious: Yes (Other)
  Sender: FDA-Public Use
  Company Number: US-BAYER-2013-157052

PATIENT
  Age: 36 Year
  Sex: Female

DRUGS (1)
  1. MIRENA [Suspect]
     Indication: CONTRACEPTION
     Dosage: 20 MCG/24HR, CONT
     Route: 015
     Dates: start: 2011, end: 201312

REACTIONS (14)
  - Ectopic pregnancy with contraceptive device [None]
  - Haematemesis [None]
  - Ruptured ectopic pregnancy [None]
  - Embedded device [None]
  - Gastric haemorrhage [None]
  - Loss of consciousness [None]
  - Drug ineffective [None]
  - Fatigue [None]
  - Depression [None]
  - Malaise [None]
  - Blood pressure decreased [None]
  - Pallor [None]
  - Infertility female [None]
  - Fear of death [None]
